FAERS Safety Report 23946488 (Version 2)
Quarter: 2024Q3

REPORT INFORMATION
  Report Type: Spontaneous
  Country: PK (occurrence: PK)
  Receive Date: 20240606
  Receipt Date: 20240730
  Transmission Date: 20241017
  Serious: Yes (Other)
  Sender: AMGEN
  Company Number: PK-PFIZER INC-PV202400068215

PATIENT
  Age: 69 Year
  Sex: Male
  Weight: 50 kg

DRUGS (12)
  1. ENBREL [Suspect]
     Active Substance: BENZYL ALCOHOL\ETANERCEPT
     Indication: Rheumatoid arthritis
     Dosage: 50 MG EVERY 2ND WEEK
     Route: 058
     Dates: start: 20211202
  2. DELTACORTRIL [Concomitant]
     Active Substance: PREDNISOLONE
     Dosage: 1 DF (TAB) EVERY 2ND DAY (AFTER BREAKFAST)
     Route: 065
  3. FOLIC ACID [Concomitant]
     Active Substance: FOLIC ACID
     Dosage: (MONDAY, TUESDAY, WEDNESDAY)
     Route: 065
  4. Sunvit [Concomitant]
     Dosage: DISSOLVE INJECTION IN MILK/WATER AND TAKE IT AFTER EVERY 3,4 MONTH
     Route: 065
  5. SULFASALAZINE [Concomitant]
     Active Substance: SULFASALAZINE
     Dosage: 500 MG 1+1 CONTINUE, 2X/DAY
     Route: 065
  6. SULFASALAZINE [Concomitant]
     Active Substance: SULFASALAZINE
     Dosage: 500 MG 1+1 CONTINUE, 2X/DAY
  7. PANADOL [Concomitant]
     Active Substance: ACETAMINOPHEN
     Indication: Pain
     Dosage: 2+2+2, AS NEEDED
     Route: 065
  8. TRAMADOL [Concomitant]
     Active Substance: TRAMADOL\TRAMADOL HYDROCHLORIDE
     Indication: Pain
     Dosage: 1+1+1, IF NEEDED
     Route: 065
  9. Risek [Concomitant]
     Indication: Gastritis
     Dosage: 40 MG,  (1 BEFORE BREAKFAST IF GASTRITIS)
     Route: 065
  10. Zeegap [Concomitant]
     Dosage: 50 MG, AT NIGHT (IF BENEFITS)
     Route: 065
  11. MACDRONIC [Concomitant]
     Dosage: 5 MG, ONCE A YEAR
     Route: 042
  12. MAXOLON [Concomitant]
     Active Substance: METOCLOPRAMIDE HYDROCHLORIDE
     Indication: Pain
     Dosage: 1+1+1, USE IF NEEDED
     Route: 065

REACTIONS (4)
  - Rheumatoid arthritis [Unknown]
  - Blood pressure increased [Unknown]
  - Foot deformity [Unknown]
  - Off label use [Unknown]
